FAERS Safety Report 25100464 (Version 1)
Quarter: 2025Q1

REPORT INFORMATION
  Report Type: Spontaneous
  Country: US (occurrence: US)
  Receive Date: 20250320
  Receipt Date: 20250320
  Transmission Date: 20250409
  Serious: No
  Sender: SANOFI AVENTIS
  Company Number: US-SA-2025SA080314

PATIENT
  Age: 27 Year
  Sex: Female

DRUGS (2)
  1. DUPIXENT [Suspect]
     Active Substance: DUPILUMAB
     Indication: Neurodermatitis
     Dosage: 300 MG, QOW
     Route: 058
     Dates: start: 202005
  2. BETADINE [Suspect]
     Active Substance: POVIDONE-IODINE

REACTIONS (2)
  - Eczema [Unknown]
  - Wrist surgery [Unknown]

NARRATIVE: CASE EVENT DATE: 20250101
